FAERS Safety Report 6981257-X (Version None)
Quarter: 2010Q3

REPORT INFORMATION
  Report Type: 
  Country: None (occurrence: None)
  Receive Date: 20100914
  Receipt Date: 20100910
  Transmission Date: 20110219
  Serious: Yes (Death)
  Sender: FDA-Public Use
  Company Number: DE-CEPHALON-2010004832

PATIENT
  Sex: Male

DRUGS (1)
  1. EFFENTORA [Suspect]
     Route: 002

REACTIONS (1)
  - MULTI-ORGAN FAILURE [None]
